FAERS Safety Report 7779882-1 (Version None)
Quarter: 2011Q3

REPORT INFORMATION
  Report Type: 
  Country: None (occurrence: None)
  Receive Date: 20110927
  Receipt Date: 20101220
  Transmission Date: 20111222
  Serious: No
  Sender: FDA-Public Use
  Company Number: US-ASTRAZENECA-2010SE60375

PATIENT
  Age: 80 Year
  Sex: Female
  Weight: 54 kg

DRUGS (18)
  1. NAMENDA [Concomitant]
  2. MIRALAX [Concomitant]
  3. COLACE [Concomitant]
  4. CENTRUM SILVER [Concomitant]
  5. ASCORBIC ACID [Concomitant]
  6. SEROQUEL [Suspect]
     Indication: ANXIETY
     Dosage: TWO 25 MG TABLETS AT NIGHT AND TWO IN THE MORNING
     Route: 048
     Dates: start: 20100801, end: 20100101
  7. XANAX [Concomitant]
  8. BENEFIBER [Concomitant]
  9. SERTRALINE HYDROCHLORIDE [Concomitant]
  10. SEROQUEL [Suspect]
     Indication: SLEEP DISORDER
     Dosage: TWO 25 MG TABLETS AT NIGHT AND TWO IN THE MORNING
     Route: 048
     Dates: start: 20100801, end: 20100101
  11. DARVOCET [Concomitant]
  12. OMEPRAZOLE [Concomitant]
  13. SEROQUEL [Suspect]
     Dosage: THREE 25 MG TABLETS AT NIGHT AND ONE IN THE MORNING
     Route: 048
     Dates: start: 20100101
  14. SEROQUEL [Suspect]
     Dosage: THREE 25 MG TABLETS AT NIGHT AND ONE IN THE MORNING
     Route: 048
     Dates: start: 20100101
  15. LEVOXYL [Concomitant]
  16. VYTORIN [Concomitant]
  17. LEVID [Concomitant]
  18. CALCIUM CARBONATE [Concomitant]

REACTIONS (5)
  - GASTROOESOPHAGEAL REFLUX DISEASE [None]
  - SLEEP DISORDER [None]
  - DRY MOUTH [None]
  - DRUG INEFFECTIVE FOR UNAPPROVED INDICATION [None]
  - NASAL CONGESTION [None]
